FAERS Safety Report 10551337 (Version 1)
Quarter: 2014Q4

REPORT INFORMATION
  Report Type: Report from Study
  Country: CO (occurrence: CO)
  Receive Date: 20141029
  Receipt Date: 20141029
  Transmission Date: 20150529
  Serious: Yes (Hospitalization)
  Sender: FDA-Public Use
  Company Number: CO-ABBVIE-14K-036-1298384-00

PATIENT
  Age: 43 Year
  Sex: Male
  Weight: 80 kg

DRUGS (2)
  1. HUMIRA [Suspect]
     Active Substance: ADALIMUMAB
     Indication: COLITIS ULCERATIVE
     Route: 058
     Dates: start: 20140616, end: 20140630
  2. MESALAZINE [Concomitant]
     Active Substance: MESALAMINE
     Indication: PRODUCT USED FOR UNKNOWN INDICATION

REACTIONS (9)
  - Pain in extremity [Recovering/Resolving]
  - Oedema [Recovering/Resolving]
  - Leishmaniasis [Recovering/Resolving]
  - Colitis ulcerative [Recovering/Resolving]
  - Erythema [Recovering/Resolving]
  - Haemorrhage [Recovering/Resolving]
  - Pyoderma gangrenosum [Recovering/Resolving]
  - Wound complication [Recovering/Resolving]
  - Skin ulcer [Recovering/Resolving]

NARRATIVE: CASE EVENT DATE: 20140910
